FAERS Safety Report 15803732 (Version 1)
Quarter: 2019Q1

REPORT INFORMATION
  Report Type: Spontaneous
  Country: US (occurrence: US)
  Receive Date: 20190107
  Receipt Date: 20190107
  Transmission Date: 20190417
  Serious: No
  Sender: FDA-Public Use
  Company Number: None

PATIENT

DRUGS (2)
  1. PITRESSIN [Suspect]
     Active Substance: VASOPRESSIN
  2. PITOCIN [Suspect]
     Active Substance: OXYTOCIN

REACTIONS (1)
  - Transcription medication error [None]
